FAERS Safety Report 22179815 (Version 2)
Quarter: 2023Q2

REPORT INFORMATION
  Report Type: Spontaneous
  Country: US (occurrence: None)
  Receive Date: 20230406
  Receipt Date: 20230609
  Transmission Date: 20230721
  Serious: Yes (Hospitalization, Other)
  Sender: FDA-Public Use
  Company Number: US-MLMSERVICE-20230309-4158849-1

PATIENT
  Age: 69 Year
  Sex: Male

DRUGS (7)
  1. PREDNISONE [Suspect]
     Active Substance: PREDNISONE
     Indication: Cough
     Route: 048
  2. PREDNISONE [Suspect]
     Active Substance: PREDNISONE
     Route: 048
  3. LEVOFLOXACIN [Suspect]
     Active Substance: LEVOFLOXACIN
     Indication: Cough
     Route: 065
  4. LEVOFLOXACIN [Suspect]
     Active Substance: LEVOFLOXACIN
     Indication: Antibiotic therapy
  5. LACTOBACILLUS ACIDOPHILUS [Suspect]
     Active Substance: LACTOBACILLUS ACIDOPHILUS
     Indication: Colitis ulcerative
     Route: 065
  6. LACTOBACILLUS ACIDOPHILUS [Suspect]
     Active Substance: LACTOBACILLUS ACIDOPHILUS
     Indication: Probiotic therapy
  7. BALSALAZIDE [Concomitant]
     Active Substance: BALSALAZIDE
     Indication: Colitis ulcerative
     Route: 065

REACTIONS (9)
  - Septic shock [Unknown]
  - Bacterial translocation [Unknown]
  - Lactobacillus bacteraemia [Unknown]
  - Prosthetic valve endocarditis [Recovered/Resolved]
  - Septic cerebral embolism [Unknown]
  - Gastrointestinal bacterial infection [Recovered/Resolved]
  - Subacute endocarditis [Recovered/Resolved]
  - Bacterial sepsis [Unknown]
  - Endocarditis bacterial [Unknown]
